FAERS Safety Report 9714372 (Version 1)
Quarter: 2013Q4

REPORT INFORMATION
  Report Type: Spontaneous
  Country: IN (occurrence: IN)
  Receive Date: 20131126
  Receipt Date: 20131126
  Transmission Date: 20140711
  Serious: Yes (Death)
  Sender: FDA-Public Use
  Company Number: IN-CELGENEUS-078-20785-13112451

PATIENT
  Sex: 0

DRUGS (4)
  1. THALIDOMIDE [Suspect]
     Indication: WALDENSTROM^S MACROGLOBULINAEMIA
     Route: 048
  2. THALIDOMIDE [Suspect]
     Indication: OFF LABEL USE
  3. CYCLOPHOSPHAMIDE [Concomitant]
     Indication: WALDENSTROM^S MACROGLOBULINAEMIA
     Route: 065
  4. DEXAMETHASONE [Concomitant]
     Indication: WALDENSTROM^S MACROGLOBULINAEMIA
     Route: 065

REACTIONS (2)
  - Disease complication [Fatal]
  - Waldenstrom^s macroglobulinaemia [Unknown]
